FAERS Safety Report 5905698-4 (Version None)
Quarter: 2008Q4

REPORT INFORMATION
  Report Type: 
  Country: None (occurrence: None)
  Receive Date: 20081002
  Receipt Date: 20080923
  Transmission Date: 20090506
  Serious: Yes (Hospitalization)
  Sender: FDA-Public Use
  Company Number: US-BAYER-200813587BCC

PATIENT
  Age: 81 Year
  Sex: Male
  Weight: 102 kg

DRUGS (3)
  1. ASPIRIN [Suspect]
     Indication: DRUG USE FOR UNKNOWN INDICATION
     Route: 048
  2. ASPIRIN [Suspect]
  3. HYDROCHLOROTHIAZIDE [Concomitant]

REACTIONS (2)
  - RECTAL HAEMORRHAGE [None]
  - ULCER HAEMORRHAGE [None]
